FAERS Safety Report 14681492 (Version 1)
Quarter: 2018Q1

REPORT INFORMATION
  Report Type: Spontaneous
  Country: ES (occurrence: ES)
  Receive Date: 20180326
  Receipt Date: 20180326
  Transmission Date: 20180509
  Serious: Yes (Other)
  Sender: FDA-Public Use
  Company Number: ES-ALLERGAN-1809681US

PATIENT
  Age: 60 Year
  Sex: Male

DRUGS (2)
  1. COMBIGAN [Suspect]
     Active Substance: BRIMONIDINE TARTRATE\TIMOLOL MALEATE
     Indication: GLAUCOMA
     Dosage: 1 GTT, BID
     Route: 047
  2. TOBRADEX [Suspect]
     Active Substance: DEXAMETHASONE\TOBRAMYCIN

REACTIONS (9)
  - Arrhythmia [Unknown]
  - Accidental exposure to product [Unknown]
  - Tachycardia [Recovered/Resolved]
  - Cataract operation [Unknown]
  - Retinal operation [Unknown]
  - Amniotic membrane graft [Unknown]
  - Dry eye [Recovered/Resolved]
  - Vitrectomy [Unknown]
  - Eye disorder [Unknown]

NARRATIVE: CASE EVENT DATE: 20160628
